FAERS Safety Report 5746973-6 (Version None)
Quarter: 2008Q2

REPORT INFORMATION
  Report Type: 
  Country: None (occurrence: None)
  Receive Date: 20080522
  Receipt Date: 20080512
  Transmission Date: 20081010
  Serious: Yes (Other)
  Sender: FDA-Public Use
  Company Number: US-PFIZER INC-2008041725

PATIENT
  Sex: Male

DRUGS (1)
  1. CHANTIX [Suspect]

REACTIONS (5)
  - AGGRESSION [None]
  - DISSOCIATION [None]
  - HALLUCINATION [None]
  - PANIC DISORDER [None]
  - SENSORY LOSS [None]
